FAERS Safety Report 9467568 (Version 1)
Quarter: 2013Q3

REPORT INFORMATION
  Report Type: Spontaneous
  Country: US (occurrence: None)
  Receive Date: 20130819
  Receipt Date: 20130819
  Transmission Date: 20140515
  Serious: Yes (Hospitalization)
  Sender: FDA-Public Use
  Company Number: None

PATIENT
  Age: 40 Year
  Sex: Female
  Weight: 63.5 kg

DRUGS (2)
  1. TYSABRI [Suspect]
     Indication: MULTIPLE SCLEROSIS
     Dosage: STRENGTH: 300MG IVPB  EVERY 4 WEEKS  INTRAVENOUS INFUSION
     Route: 042
     Dates: start: 2010, end: 201306
  2. AZITHROMYCIN [Concomitant]

REACTIONS (12)
  - Nausea [None]
  - Vomiting [None]
  - Diarrhoea [None]
  - Oropharyngeal pain [None]
  - Malaise [None]
  - Pyrexia [None]
  - Burning sensation [None]
  - Parosmia [None]
  - Dysgeusia [None]
  - Hallucination [None]
  - White blood cell count increased [None]
  - Herpes simplex encephalitis [None]
